FAERS Safety Report 9546496 (Version 2)
Quarter: 2013Q3

REPORT INFORMATION
  Report Type: Spontaneous
  Country: US (occurrence: US)
  Receive Date: 20130923
  Receipt Date: 20130923
  Transmission Date: 20140515
  Serious: No
  Sender: FDA-Public Use
  Company Number: US-ALLERGAN-1214147US

PATIENT
  Sex: Female

DRUGS (2)
  1. ACUVAIL [Suspect]
     Indication: RETINAL DISORDER
     Dosage: UNK
     Route: 047
  2. SYNTHROID [Concomitant]
     Indication: THYROID DISORDER
     Dosage: UNK

REACTIONS (3)
  - Photopsia [Not Recovered/Not Resolved]
  - Headache [Unknown]
  - Drug ineffective [Unknown]
